FAERS Safety Report 14484243 (Version 10)
Quarter: 2019Q3

REPORT INFORMATION
  Report Type: Report from Study
  Country: FR (occurrence: FR)
  Receive Date: 20180205
  Receipt Date: 20190910
  Transmission Date: 20191004
  Serious: Yes (Hospitalization)
  Sender: FDA-Public Use
  Company Number: FR-ROCHE-2065134

PATIENT
  Age: 61 Year
  Sex: Male
  Weight: 70.05 kg

DRUGS (15)
  1. IALUSET [Concomitant]
     Indication: DERMATITIS ACNEIFORM
     Dosage: DOSE: 1 OTHER
     Route: 061
     Dates: start: 20170913, end: 2018
  2. SMECTA [Concomitant]
     Active Substance: MONTMORILLONITE
     Indication: DIARRHOEA
     Dosage: DOSE: 1 OTHER
     Route: 048
     Dates: start: 20170824, end: 2018
  3. EUPANTOL [Concomitant]
     Active Substance: PANTOPRAZOLE SODIUM
     Indication: GASTROOESOPHAGEAL REFLUX DISEASE
     Route: 048
     Dates: start: 20180220, end: 2018
  4. SOLUPRED [PREDNISOLONE METASULFOBENZOATE SODIUM] [Concomitant]
     Active Substance: PREDNISOLONE SODIUM METAZOATE
     Indication: ABDOMINAL PAIN
  5. ATEZOLIZUMAB. [Suspect]
     Active Substance: ATEZOLIZUMAB
     Indication: TRANSITIONAL CELL CARCINOMA
     Dosage: DATE OF MOST RECENT DOSE OF MPDL3280A PRIOR TO SAES (DIARRHEA AND MUCITE) ONSET 17/JAN/2018 AT 10 55
     Route: 042
     Dates: start: 20170711
  6. FLUCONAZOLE. [Concomitant]
     Active Substance: FLUCONAZOLE
     Indication: MUCOSAL INFLAMMATION
     Route: 048
     Dates: start: 20180222, end: 20180304
  7. PARACETAMOL [Concomitant]
     Active Substance: ACETAMINOPHEN
     Indication: BACK PAIN
     Route: 050
  8. SOLUPRED [PREDNISOLONE METASULFOBENZOATE SODIUM] [Concomitant]
     Active Substance: PREDNISOLONE SODIUM METAZOATE
     Indication: DYSGEUSIA
     Dosage: 1 OTHER
     Route: 061
     Dates: start: 20180102, end: 20180117
  9. IMODIUM [Concomitant]
     Active Substance: LOPERAMIDE HYDROCHLORIDE
     Indication: DIARRHOEA
     Dosage: DOSE: 1 OTHER
     Route: 048
     Dates: start: 20170824, end: 2018
  10. ESOMEPRAZOLE. [Concomitant]
     Active Substance: ESOMEPRAZOLE MAGNESIUM
     Indication: GASTROOESOPHAGEAL REFLUX DISEASE
     Route: 048
     Dates: start: 2018
  11. ASPIRINE [Concomitant]
     Active Substance: ASPIRIN
     Indication: BACK PAIN
     Route: 048
     Dates: start: 2018
  12. TIORFAN [Concomitant]
     Active Substance: RACECADOTRIL
     Indication: DIARRHOEA
     Route: 048
     Dates: start: 20180220, end: 2018
  13. BICARBONATE [Concomitant]
     Active Substance: SODIUM BICARBONATE
     Indication: MUCOSAL INFLAMMATION
     Dosage: BICARBONATE RINSE
     Route: 061
     Dates: start: 20180222, end: 2018
  14. SOLUPRED [PREDNISOLONE METASULFOBENZOATE SODIUM] [Concomitant]
     Active Substance: PREDNISOLONE SODIUM METAZOATE
     Indication: COLITIS
     Dosage: AS TREATMENT
     Route: 065
  15. LASILIX [FUROSEMIDE] [Concomitant]
     Active Substance: FUROSEMIDE
     Indication: OEDEMA PERIPHERAL
     Route: 048
     Dates: start: 20180224, end: 20180227

REACTIONS (1)
  - Immune-mediated enterocolitis [Recovered/Resolved]

NARRATIVE: CASE EVENT DATE: 20180121
